FAERS Safety Report 9050295 (Version 3)
Quarter: 2013Q2

REPORT INFORMATION
  Report Type: Spontaneous
  Country: FR (occurrence: FR)
  Receive Date: 20130205
  Receipt Date: 20130401
  Transmission Date: 20140414
  Serious: Yes (Death)
  Sender: FDA-Public Use
  Company Number: FR-ABBOTT-13P-056-1043815-00

PATIENT
  Age: 42 Year
  Sex: Female
  Weight: 79 kg

DRUGS (4)
  1. HUMIRA [Suspect]
     Indication: CROHN^S DISEASE
     Dosage: LOADING DOSE
     Dates: start: 201301, end: 201301
  2. HUMIRA [Suspect]
     Route: 058
     Dates: start: 20130122, end: 20130122
  3. CORTANCYL [Concomitant]
     Indication: CROHN^S DISEASE
     Route: 048
     Dates: start: 20121012
  4. PREDNISOLONE [Concomitant]

REACTIONS (2)
  - Pulmonary embolism [Fatal]
  - Cardio-respiratory arrest [Fatal]
